FAERS Safety Report 4342168-1 (Version None)
Quarter: 2004Q2

REPORT INFORMATION
  Report Type: 
  Country: None (occurrence: None)
  Receive Date: 20040409
  Receipt Date: 20031105
  Transmission Date: 20050107
  Serious: Yes (Hospitalization)
  Sender: FDA-Public Use
  Company Number: 03P-163-0240291-00

PATIENT
  Sex: Female
  Weight: 122.4712 kg

DRUGS (10)
  1. DEPAKOTE [Suspect]
     Indication: AFFECTIVE DISORDER
     Dosage: 1500 MG, 1 IN 1 D, PER ORAL;2000 MG, 1 IN 1 D, PER ORAL;1250 MG, 1 IN 1 D, PER ORAL
     Route: 048
     Dates: start: 20030101, end: 20030101
  2. DEPAKOTE [Suspect]
     Indication: AFFECTIVE DISORDER
     Dosage: 1500 MG, 1 IN 1 D, PER ORAL;2000 MG, 1 IN 1 D, PER ORAL;1250 MG, 1 IN 1 D, PER ORAL
     Route: 048
     Dates: end: 20030101
  3. DEPAKOTE [Suspect]
     Indication: AFFECTIVE DISORDER
     Dosage: 1500 MG, 1 IN 1 D, PER ORAL;2000 MG, 1 IN 1 D, PER ORAL;1250 MG, 1 IN 1 D, PER ORAL
     Route: 048
     Dates: start: 20021001
  4. DEPAKOTE [Suspect]
     Dosage: 1500 MG, 1 IN 1 D, PER ORAL
     Route: 048
     Dates: start: 20030101
  5. LEVOTHYROXINE SODIUM [Concomitant]
  6. FLUVASTATIN SODIUM [Concomitant]
  7. ZOLPIDEM TARTRATE [Concomitant]
  8. FLUVOXAMINE MALEATE [Concomitant]
  9. DIAZEPAM [Concomitant]
  10. TRIAMCINOLONE [Concomitant]

REACTIONS (4)
  - DRUG LEVEL INCREASED [None]
  - MUSCLE TWITCHING [None]
  - SOMNOLENCE [None]
  - TREMOR [None]
